FAERS Safety Report 9604298 (Version 2)
Quarter: 2013Q4

REPORT INFORMATION
  Report Type: Report from Study
  Country: AU (occurrence: AU)
  Receive Date: 20131008
  Receipt Date: 20131008
  Transmission Date: 20140711
  Serious: Yes (Other)
  Sender: FDA-Public Use
  Company Number: PHHY2013AU105776

PATIENT
  Age: 80 Year
  Sex: Female
  Weight: 58 kg

DRUGS (9)
  1. ACLASTA [Suspect]
     Dosage: 5MG/100ML
     Route: 042
     Dates: start: 20090707
  2. ACLASTA [Suspect]
     Dosage: 5MG/100ML
     Route: 042
     Dates: start: 20100715
  3. ACLASTA [Suspect]
     Dosage: 5MG/100ML
     Route: 042
     Dates: start: 20110719
  4. ACLASTA [Suspect]
     Dosage: 5MG/100ML
     Route: 042
     Dates: start: 20130913
  5. ACIMAX [Concomitant]
     Dosage: 1 DF, QD
     Route: 048
     Dates: start: 20130715
  6. ACIMAX [Concomitant]
     Dosage: 1 DF, QD
     Route: 048
     Dates: start: 20130909
  7. FERROUS FUMARATE [Concomitant]
     Dosage: 1 DF, BID (1 TABLET EQUIVALENT TO ELEMENTAL IRON 65.7MG)
     Route: 048
     Dates: start: 20130913
  8. PANADEINE FORTE [Concomitant]
     Dosage: 2 DF, BID (1 TO 2 NOCTE)
     Route: 048
     Dates: start: 20130909
  9. PANADOL OSTEO [Concomitant]
     Dosage: 2 DF, TID
     Route: 048
     Dates: start: 20130715

REACTIONS (12)
  - Fall [Unknown]
  - Hand fracture [Unknown]
  - Rib fracture [Unknown]
  - Loss of consciousness [Unknown]
  - Aspartate aminotransferase increased [Recovered/Resolved]
  - Rectal haemorrhage [Unknown]
  - White blood cell count decreased [Unknown]
  - Neutrophil count decreased [Unknown]
  - Blood iron decreased [Unknown]
  - Transferrin decreased [Unknown]
  - Transferrin saturation decreased [Unknown]
  - Gastrooesophageal reflux disease [Unknown]
